FAERS Safety Report 10518420 (Version 1)
Quarter: 2014Q4

REPORT INFORMATION
  Report Type: Spontaneous
  Country: US (occurrence: US)
  Receive Date: 20141015
  Receipt Date: 20141015
  Transmission Date: 20150528
  Serious: No
  Sender: FDA-Public Use
  Company Number: US-JNJFOC-20141003212

PATIENT
  Age: 36 Year
  Sex: Female
  Weight: 99.79 kg

DRUGS (1)
  1. DURAGESIC [Suspect]
     Active Substance: FENTANYL
     Indication: FIBROMYALGIA
     Route: 062
     Dates: start: 20140930

REACTIONS (4)
  - Wrong technique in drug usage process [Recovered/Resolved]
  - Wrong technique in drug usage process [Unknown]
  - Hyperhidrosis [Not Recovered/Not Resolved]
  - Product adhesion issue [Not Recovered/Not Resolved]

NARRATIVE: CASE EVENT DATE: 2014
